FAERS Safety Report 15997996 (Version 2)
Quarter: 2019Q1

REPORT INFORMATION
  Report Type: Spontaneous
  Country: US (occurrence: US)
  Receive Date: 20190222
  Receipt Date: 20190318
  Transmission Date: 20190418
  Serious: Yes (Hospitalization)
  Sender: FDA-Public Use
  Company Number: PHEH2019US008049

PATIENT
  Sex: Female

DRUGS (2)
  1. TASIGNA [Suspect]
     Active Substance: NILOTINIB
     Indication: CHRONIC MYELOID LEUKAEMIA
     Dosage: 300 MG, BID
     Route: 048
  2. METHOTREXATE. [Concomitant]
     Active Substance: METHOTREXATE
     Indication: PRODUCT USED FOR UNKNOWN INDICATION
     Route: 065

REACTIONS (8)
  - Cough [Not Recovered/Not Resolved]
  - Dyspnoea [Unknown]
  - Hypoxia [Unknown]
  - Upper respiratory tract infection [Unknown]
  - Chest pain [Not Recovered/Not Resolved]
  - Rotator cuff syndrome [Recovered/Resolved]
  - Back pain [Unknown]
  - Secretion discharge [Unknown]
